FAERS Safety Report 24524722 (Version 1)
Quarter: 2024Q4

REPORT INFORMATION
  Report Type: Spontaneous
  Country: US (occurrence: US)
  Receive Date: 20241019
  Receipt Date: 20241019
  Transmission Date: 20250115
  Serious: Yes (Other)
  Sender: AUROBINDO
  Company Number: US-AUROBINDO-AUR-APL-2024-051057

PATIENT
  Age: 56 Year
  Sex: Male

DRUGS (2)
  1. AZITHROMYCIN [Suspect]
     Active Substance: AZITHROMYCIN
     Indication: Endocarditis staphylococcal
     Dosage: UNK
     Route: 065
  2. ROCEPHIN [Suspect]
     Active Substance: CEFTRIAXONE SODIUM
     Indication: Endocarditis staphylococcal
     Dosage: UNK
     Route: 042

REACTIONS (1)
  - Drug ineffective [Unknown]
